FAERS Safety Report 8672004 (Version 2)
Quarter: 2013Q4

REPORT INFORMATION
  Report Type: Spontaneous
  Country: US (occurrence: US)
  Receive Date: 20120719
  Receipt Date: 20131101
  Transmission Date: 20140711
  Serious: No
  Sender: FDA-Public Use
  Company Number: US-009507513-1207USA002246

PATIENT
  Age: 60 Year
  Sex: Female

DRUGS (2)
  1. JANUMET [Suspect]
     Indication: DIABETES MELLITUS
     Dosage: 50/1000MG, BID
     Route: 048
  2. LEXAPRO [Concomitant]

REACTIONS (2)
  - Rhinorrhoea [Unknown]
  - Nasal congestion [Unknown]
